FAERS Safety Report 8604910 (Version 2)
Quarter: 2013Q2

REPORT INFORMATION
  Report Type: Spontaneous
  Country: US (occurrence: US)
  Receive Date: 20120608
  Receipt Date: 20130617
  Transmission Date: 20140414
  Serious: Yes (Hospitalization, Disabling)
  Sender: FDA-Public Use
  Company Number: US-ASTRAZENECA-2012SE35062

PATIENT
  Age: 50 Year
  Sex: Female
  Weight: 72 kg

DRUGS (5)
  1. NEXIUM [Suspect]
     Indication: PEPTIC ULCER
     Route: 048
     Dates: start: 20070501, end: 201301
  2. NEXIUM [Suspect]
     Indication: PEPTIC ULCER
     Route: 048
     Dates: start: 20070505
  3. OTC PEPCID [Concomitant]
     Dates: start: 2008
  4. SIMVASTATIN [Concomitant]
     Indication: BLOOD CHOLESTEROL INCREASED
  5. RANITIDINE [Concomitant]
     Indication: PEPTIC ULCER

REACTIONS (9)
  - Tibia fracture [Unknown]
  - Fibula fracture [Unknown]
  - Colitis ulcerative [Unknown]
  - Fall [Unknown]
  - Osteoporosis [Unknown]
  - Muscle spasms [Unknown]
  - Bronchitis [Unknown]
  - Intervertebral disc protrusion [Unknown]
  - Ankle fracture [Unknown]
